FAERS Safety Report 7896521 (Version 2)
Quarter: 2014Q3

REPORT INFORMATION
  Report Type: Spontaneous
  Country: CA (occurrence: CA)
  Receive Date: 20110413
  Receipt Date: 20140808
  Transmission Date: 20150326
  Serious: Yes (Other)
  Sender: FDA-Public Use
  Company Number: US-ASTELLAS-2011US001437

PATIENT
  Age: 9 Year
  Sex: Male

DRUGS (8)
  1. ANTIBIOTICS [Concomitant]
     Active Substance: UNSPECIFIED INGREDIENT
     Indication: ANTIBIOTIC THERAPY
     Route: 042
  2. VORICONAZOLE. [Concomitant]
     Active Substance: VORICONAZOLE
     Indication: FUNGAL INFECTION
     Route: 048
  3. CELLCEPT [Concomitant]
     Active Substance: MYCOPHENOLATE MOFETIL\MYCOPHENOLATE MOFETIL HYDROCHLORIDE
     Indication: LUNG TRANSPLANT
     Route: 065
  4. PREDNISONE. [Concomitant]
     Active Substance: PREDNISONE
     Indication: LUNG TRANSPLANT
     Route: 065
  5. AMBISOME [Suspect]
     Active Substance: AMPHOTERICIN B
     Indication: FUNGAL INFECTION
     Route: 042
  6. CASPOFUNGIN [Concomitant]
     Active Substance: CASPOFUNGIN
     Indication: FUNGAL INFECTION
     Route: 042
  7. AMBISOME [Suspect]
     Active Substance: AMPHOTERICIN B
     Route: 055
  8. PROGRAF [Suspect]
     Active Substance: TACROLIMUS\TACROLIMUS ANHYDROUS
     Indication: LUNG TRANSPLANT
     Route: 048

REACTIONS (4)
  - Fungal infection [Recovered/Resolved]
  - Renal impairment [Unknown]
  - Lung transplant rejection [Recovered/Resolved]
  - Off label use [Unknown]
